FAERS Safety Report 4623585-9 (Version None)
Quarter: 2005Q2

REPORT INFORMATION
  Report Type: 
  Country: None (occurrence: None)
  Receive Date: 20050325
  Receipt Date: 20041217
  Transmission Date: 20051028
  Serious: No
  Sender: FDA-Public Use
  Company Number: USA041080204

PATIENT
  Age: 70 Year
  Sex: Female

DRUGS (2)
  1. FORTEO [Suspect]
     Indication: OSTEOPOROSIS
     Dosage: 20 UG
     Dates: start: 20040701
  2. ASPIRIN [Concomitant]

REACTIONS (3)
  - ACCIDENTAL OVERDOSE [None]
  - INJECTION SITE HAEMORRHAGE [None]
  - MEDICATION ERROR [None]
